FAERS Safety Report 8181633-6 (Version None)
Quarter: 2012Q1

REPORT INFORMATION
  Report Type: 
  Country: None (occurrence: None)
  Receive Date: 20120302
  Receipt Date: 20120227
  Transmission Date: 20120608
  Serious: Yes (Hospitalization, Disabling, Other)
  Sender: FDA-Public Use
  Company Number: NO-PFIZER INC-2011133266

PATIENT
  Age: 31 Year
  Sex: Male

DRUGS (6)
  1. ALPRAZOLAM [Suspect]
     Indication: ANXIETY
     Dosage: 0,5 MG X 4 FOR TWO WEEKS
     Dates: start: 20100201
  2. FLUOXETINE HCL [Suspect]
     Indication: PANIC DISORDER
  3. VALIUM [Suspect]
     Indication: PANIC DISORDER
     Dosage: UNK
     Dates: start: 20100201, end: 20100101
  4. ALPRAZOLAM [Suspect]
     Indication: PANIC DISORDER
     Dosage: 25 MG, 1X/DAY
     Dates: end: 20100301
  5. FLUOXETINE HCL [Suspect]
     Indication: ANXIETY
     Dosage: 20 MG, 1X/DAY
     Dates: start: 20100201, end: 20100601
  6. INDERAL [Concomitant]
     Indication: HEART RATE INCREASED
     Dosage: 40 MG, 2X/DAY
     Dates: start: 20100401

REACTIONS (12)
  - ASTHENIA [None]
  - MUSCLE SPASMS [None]
  - PHOTOPHOBIA [None]
  - DYSPNOEA [None]
  - ABDOMINAL PAIN [None]
  - FUNGAL INFECTION [None]
  - WITHDRAWAL SYNDROME [None]
  - FATIGUE [None]
  - CONSTIPATION [None]
  - INSOMNIA [None]
  - ANXIETY [None]
  - ACTIVITIES OF DAILY LIVING IMPAIRED [None]
